FAERS Safety Report 6738532-3 (Version None)
Quarter: 2010Q2

REPORT INFORMATION
  Report Type: 
  Country: None (occurrence: None)
  Receive Date: 20100520
  Receipt Date: 20100511
  Transmission Date: 20101027
  Serious: Yes (Other)
  Sender: FDA-Public Use
  Company Number: TRP_06963_2010

PATIENT
  Sex: Female
  Weight: 91.6 kg

DRUGS (7)
  1. INTERFERON [Suspect]
     Indication: HEPATITIS C
  2. LIPITOR [Suspect]
     Indication: BLOOD CHOLESTEROL INCREASED
     Dosage: 80 MG QD, [ALSO TOOK 40 MG ONCE A DAY FOR AN UNKNOWN TIME PERIOD] ORAL
     Route: 048
     Dates: start: 20100301
  3. GABAPENTIN [Suspect]
     Indication: FIBROMYALGIA
  4. VITAMIN B6 [Suspect]
     Indication: DRUG USE FOR UNKNOWN INDICATION
  5. SYNTHROID [Concomitant]
  6. BACLOFEN [Concomitant]
  7. ANTIDEPRESSANTS [Concomitant]

REACTIONS (9)
  - AGITATION [None]
  - BLOOD CHOLESTEROL INCREASED [None]
  - DRUG INEFFECTIVE [None]
  - FEELING ABNORMAL [None]
  - NIGHTMARE [None]
  - RESTLESS LEGS SYNDROME [None]
  - SCREAMING [None]
  - SLEEP TERROR [None]
  - WRONG TECHNIQUE IN DRUG USAGE PROCESS [None]
